FAERS Safety Report 5581205-3 (Version None)
Quarter: 2007Q4

REPORT INFORMATION
  Report Type: 
  Country: None (occurrence: None)
  Receive Date: 20071130
  Receipt Date: 20070713
  Transmission Date: 20080405
  Serious: No
  Sender: FDA-Public Use
  Company Number: US200707003598

PATIENT
  Age: 46 Year
  Sex: Female
  Weight: 106.1 kg

DRUGS (5)
  1. BYETTA [Suspect]
     Indication: TYPE 2 DIABETES MELLITUS
     Dosage: 5 UG,  10 UG, SUBCUTANEOUS
     Route: 058
     Dates: start: 20050101, end: 20050101
  2. BYETTA [Suspect]
     Indication: TYPE 2 DIABETES MELLITUS
     Dosage: 5 UG,  10 UG, SUBCUTANEOUS
     Route: 058
     Dates: start: 20050101, end: 20070101
  3. METFORMIN HCL [Concomitant]
  4. STARLIX [Concomitant]
  5. SYMLIN [Concomitant]

REACTIONS (9)
  - ARTHRITIS [None]
  - BLOOD GLUCOSE INCREASED [None]
  - DRUG INEFFECTIVE [None]
  - ERYTHEMA [None]
  - NODULE [None]
  - PAIN IN EXTREMITY [None]
  - PRURITUS [None]
  - SWELLING [None]
  - WEIGHT INCREASED [None]
